FAERS Safety Report 13827917 (Version 2)
Quarter: 2021Q4

REPORT INFORMATION
  Report Type: Report from Study
  Country: FR (occurrence: FR)
  Receive Date: 20170803
  Receipt Date: 20211117
  Transmission Date: 20220303
  Serious: Yes (Hospitalization)
  Sender: FDA-Public Use
  Company Number: FR-BEAUFOUR-IPSEN PHARMA-2016-04806

PATIENT
  Age: 10 Year
  Sex: Male
  Weight: 22.8 kg

DRUGS (5)
  1. INCRELEX [Suspect]
     Active Substance: MECASERMIN
     Indication: Primary insulin like growth factor-1 deficiency
     Route: 058
     Dates: start: 20080729, end: 20101121
  2. INCRELEX [Suspect]
     Active Substance: MECASERMIN
     Route: 058
     Dates: start: 20080718, end: 20080721
  3. INCRELEX [Suspect]
     Active Substance: MECASERMIN
     Route: 058
     Dates: start: 20080722, end: 20080728
  4. INCRELEX [Suspect]
     Active Substance: MECASERMIN
     Route: 058
     Dates: start: 20110720, end: 201212
  5. INCRELEX [Suspect]
     Active Substance: MECASERMIN
     Route: 058
     Dates: start: 20130627, end: 20130903

REACTIONS (3)
  - Tonsillar hypertrophy [Recovered/Resolved]
  - Sleep apnoea syndrome [Recovered/Resolved]
  - Otitis media [Unknown]

NARRATIVE: CASE EVENT DATE: 20090202
